FAERS Safety Report 23306693 (Version 1)
Quarter: 2023Q4

REPORT INFORMATION
  Report Type: Spontaneous
  Country: US (occurrence: US)
  Receive Date: 20231218
  Receipt Date: 20231218
  Transmission Date: 20240110
  Serious: No
  Sender: FDA-Public Use
  Company Number: US-RECKITT BENCKISER HEALTHCARE INT LIMITED-RB-096690-2023

PATIENT
  Age: 62 Year
  Sex: Female

DRUGS (3)
  1. DELSYM [Suspect]
     Active Substance: DEXTROMETHORPHAN
     Indication: Cough
     Dosage: 10ML AT QD FREQUENCY
     Route: 048
     Dates: start: 20230425, end: 20230525
  2. DELSYM [Suspect]
     Active Substance: DEXTROMETHORPHAN
     Indication: Oropharyngeal pain
  3. LEVOTHYROXINE [Concomitant]
     Active Substance: LEVOTHYROXINE
     Indication: Product used for unknown indication
     Dosage: UNKNOWN
     Route: 065

REACTIONS (2)
  - Lip swelling [Recovered/Resolved]
  - Product use in unapproved indication [Recovered/Resolved]

NARRATIVE: CASE EVENT DATE: 20230425
